FAERS Safety Report 9513679 (Version 2)
Quarter: 2014Q1

REPORT INFORMATION
  Report Type: Spontaneous
  Country: US (occurrence: None)
  Receive Date: 20130305
  Receipt Date: 20140306
  Transmission Date: 20141002
  Serious: Yes (Hospitalization, Other)
  Sender: FDA-Public Use
  Company Number: 163-21880-12102102

PATIENT
  Age: 71 Year
  Sex: Male
  Weight: 86.7 kg

DRUGS (37)
  1. REVLIMID [Suspect]
     Indication: PLASMA CELL MYELOMA
     Dosage: 10 MG, 14 IN 14 D, PO
     Route: 048
     Dates: start: 200903
  2. DECADRON (DEXAMETHASONE) [Concomitant]
  3. VELCADE (BORTEZOMIB) [Concomitant]
  4. ASPIRIN (ACETYLSALICYLIC ACID) [Concomitant]
  5. BACTRIM DS (BACTRIM) [Concomitant]
  6. LEVAQUIN (LEVOFLOXACIN) [Concomitant]
  7. MULTIVITAMIN (MULTIVITAMINS) [Concomitant]
  8. NORCO (VICODIN) [Concomitant]
  9. SIMVASTATIN (SIMVASTATIN) [Concomitant]
  10. TRICOR (FENOFIBRATE) [Concomitant]
  11. VALTREX (VALACICLOVIR HYDROCHLORIDE) [Concomitant]
  12. ALLOPURINOL [Concomitant]
  13. COLCHICINE [Concomitant]
  14. KRYPOLIS (CARFILZOMIB) [Concomitant]
  15. PACKED RED BLOOD CELLS [Concomitant]
  16. LASIX (FUROSEMIDE) [Concomitant]
  17. DIPHENHYDRAMINE [Concomitant]
  18. ACETAMINOPHEN (PARACETAMOL) [Concomitant]
  19. NORMAL SALINE (SODIUM CHLORIDE) [Concomitant]
  20. PROCRIT (ERYTHROPOIETIN) [Concomitant]
  21. ZOFRAN (ONDANSETRON HYDROCHLORIDE) [Concomitant]
  22. ZOMETA (ZOLEDRONIC ACID) [Concomitant]
  23. CRANBERRY (OTHER THERAPEUTIC PRODUCTS) [Concomitant]
  24. MORPHINE [Concomitant]
  25. PROCHLORPERAZINE [Concomitant]
  26. ZANTAC (RANITIDINE HYDROCHLORIDE) [Concomitant]
  27. SINEMET [Concomitant]
  28. SENOKOT-S [Concomitant]
  29. MILK OF MAGNESIA (MAGNESIUM HYDROXIDE) [Concomitant]
  30. PANTOPRAZOLE [Concomitant]
  31. DUONEB (COMBIVENT) [Concomitant]
  32. OXYGEN [Concomitant]
  33. DOCUSATE SODIUM [Concomitant]
  34. HEPARIN [Concomitant]
  35. HYDROCODONE-APAP (PROCET) [Concomitant]
  36. HALOPERIDOL [Concomitant]
  37. POLYETHYLENE GLYCOL ELECT (MACROGOL) [Concomitant]

REACTIONS (10)
  - Anaemia [None]
  - Drug ineffective [None]
  - Plasma cell myeloma [None]
  - Neuropathy peripheral [None]
  - Pneumonia [None]
  - Pleural effusion [None]
  - Dyspnoea [None]
  - Rib fracture [None]
  - Thrombocytopenia [None]
  - Plasma cell myeloma [None]
